FAERS Safety Report 9596974 (Version 1)
Quarter: 2013Q4

REPORT INFORMATION
  Report Type: Spontaneous
  Country: IT (occurrence: IT)
  Receive Date: 20131004
  Receipt Date: 20131004
  Transmission Date: 20140711
  Serious: Yes (Hospitalization)
  Sender: FDA-Public Use
  Company Number: PHHY2013IT108785

PATIENT
  Sex: 0

DRUGS (4)
  1. RAMIPRIL [Suspect]
     Indication: ESSENTIAL HYPERTENSION
     Dosage: 10 MG, QD
     Route: 048
     Dates: start: 20130919, end: 20130919
  2. PANTOPRAZOLO ACTAVIS [Concomitant]
  3. LASIX [Concomitant]
  4. PARACETAMOL [Concomitant]

REACTIONS (1)
  - Localised oedema [Recovering/Resolving]
